FAERS Safety Report 19485765 (Version 1)
Quarter: 2021Q3

REPORT INFORMATION
  Report Type: Spontaneous
  Country: PL (occurrence: PL)
  Receive Date: 20210702
  Receipt Date: 20210702
  Transmission Date: 20211014
  Serious: Yes (Hospitalization, Other)
  Sender: FDA-Public Use
  Company Number: PL-B.I. PHARMACEUTICALS,INC./RIDGEFIELD-2021-BI-111997

PATIENT
  Age: 73 Year
  Sex: Female
  Weight: 64 kg

DRUGS (3)
  1. GILOTRIF [Suspect]
     Active Substance: AFATINIB
     Dates: start: 201804, end: 201809
  2. GILOTRIF [Suspect]
     Active Substance: AFATINIB
     Dates: start: 201809, end: 201904
  3. GILOTRIF [Suspect]
     Active Substance: AFATINIB
     Indication: PRODUCT USED FOR UNKNOWN INDICATION
     Dates: start: 201707, end: 201804

REACTIONS (6)
  - Erysipelas [Unknown]
  - Skin lesion [Unknown]
  - EGFR gene mutation [Unknown]
  - Disease progression [Unknown]
  - Pustule [Unknown]
  - Paronychia [Unknown]

NARRATIVE: CASE EVENT DATE: 20170726
